FAERS Safety Report 8226773-8 (Version None)
Quarter: 2012Q1

REPORT INFORMATION
  Report Type: 
  Country: None (occurrence: None)
  Receive Date: 20120322
  Receipt Date: 20120315
  Transmission Date: 20120608
  Serious: Yes (Hospitalization, Other)
  Sender: FDA-Public Use
  Company Number: US-BAYER-201015709NA

PATIENT
  Age: 28 Year
  Sex: Female
  Weight: 93 kg

DRUGS (3)
  1. YAZ [Suspect]
     Indication: ORAL CONTRACEPTION
     Route: 048
     Dates: start: 20071101, end: 20080312
  2. ACETAMINOPHEN [Concomitant]
     Indication: HEADACHE
  3. UNKNOWN DRUG [Concomitant]
     Indication: PRODUCT USED FOR UNKNOWN INDICATION
     Route: 042

REACTIONS (7)
  - PAIN IN EXTREMITY [None]
  - DEEP VEIN THROMBOSIS [None]
  - HEART RATE DECREASED [None]
  - PULMONARY EMBOLISM [None]
  - SYNCOPE [None]
  - DYSPNOEA [None]
  - BLOOD PRESSURE SYSTOLIC DECREASED [None]
